FAERS Safety Report 4423649-9 (Version None)
Quarter: 2004Q3

REPORT INFORMATION
  Report Type: 
  Country: None (occurrence: None)
  Receive Date: 20040719
  Receipt Date: 20040409
  Transmission Date: 20050211
  Serious: Yes (Other)
  Sender: FDA-Public Use
  Company Number: A03200401132

PATIENT
  Sex: Male

DRUGS (2)
  1. UROXATRAL [Suspect]
     Dosage: NI UNK; ORAL
     Route: 048
  2. SULFAMETHOXAZOLE + TRIMETHOPRIM [Concomitant]

REACTIONS (1)
  - SYNCOPE [None]
